FAERS Safety Report 8297675 (Version 2)
Quarter: 2014Q1

REPORT INFORMATION
  Report Type: Spontaneous
  Country: US (occurrence: US)
  Receive Date: 20111219
  Receipt Date: 20140122
  Transmission Date: 20141002
  Serious: Yes (Other)
  Sender: FDA-Public Use
  Company Number: US-BAYER-2011-117967

PATIENT
  Age: 39 Year
  Sex: Female

DRUGS (10)
  1. YASMIN [Suspect]
     Dosage: UNK
     Route: 048
     Dates: start: 200403, end: 200606
  2. DIFFERIN [Concomitant]
     Dosage: 0.1 UNK, UNK
     Dates: start: 20000802, end: 20041219
  3. NYSTATIN [Concomitant]
     Dosage: 100000 U, UNK
     Route: 048
     Dates: start: 20050705
  4. LIDOCAINE [Concomitant]
     Dosage: 2 UNK, UNK
     Dates: start: 20050105
  5. NITROFURANTOIN [Concomitant]
     Dosage: 100 MG, UNK
     Dates: start: 20050113, end: 20050123
  6. ZITHROMAX [Concomitant]
     Dosage: UNK
     Dates: start: 20050304
  7. LEVAQUIN [Concomitant]
     Dosage: 500 MG, UNK
     Dates: start: 20050311
  8. FLUCONAZOLE [Concomitant]
     Dosage: 150 MG, UNK
     Dates: start: 20040301, end: 20071003
  9. CLARINEX [DESLORATADINE] [Concomitant]
     Dosage: 5 MG, UNK
     Dates: start: 20030320, end: 20081228
  10. RANITIDINE [Concomitant]
     Dosage: 150 MG, UNK
     Dates: start: 20031024, end: 20090820

REACTIONS (6)
  - Gallbladder disorder [None]
  - Cholecystitis chronic [None]
  - Post cholecystectomy syndrome [None]
  - Gallbladder pain [None]
  - Injury [None]
  - Anxiety [None]
